FAERS Safety Report 4545258-3 (Version None)
Quarter: 2005Q1

REPORT INFORMATION
  Report Type: 
  Country: None (occurrence: None)
  Receive Date: 20050105
  Receipt Date: 20041230
  Transmission Date: 20050727
  Serious: Yes (Hospitalization)
  Sender: FDA-Public Use
  Company Number: US-JNJFOC-20041207479

PATIENT
  Age: 50 Year
  Sex: Female

DRUGS (2)
  1. MOTRIN [Suspect]
     Route: 049
  2. MOTRIN [Suspect]
     Dosage: 400MG PRN
     Route: 049

REACTIONS (7)
  - DYSPNOEA [None]
  - FEELING ABNORMAL [None]
  - FIBROMYALGIA [None]
  - OXYGEN SATURATION DECREASED [None]
  - STEVENS-JOHNSON SYNDROME [None]
  - VOCAL CORD DISORDER [None]
  - VOCAL CORD PARALYSIS [None]
